FAERS Safety Report 4373797-7 (Version None)
Quarter: 2004Q2

REPORT INFORMATION
  Report Type: 
  Country: None (occurrence: None)
  Receive Date: 20040603
  Receipt Date: 20040518
  Transmission Date: 20050107
  Serious: Yes (Other)
  Sender: FDA-Public Use
  Company Number: K200301882

PATIENT
  Age: 74 Year
  Sex: Female

DRUGS (2)
  1. ALTACE [Suspect]
     Indication: HYPERTENSION
     Dosage: 5MG, QD, ORAL
     Route: 048
     Dates: start: 20030522, end: 20031202
  2. INDAPAMIDE ^SERVIER^ (INDAPAMIDE) [Concomitant]

REACTIONS (7)
  - CONSTIPATION [None]
  - COUGH [None]
  - DIPLOPIA [None]
  - GASTROINTESTINAL PAIN [None]
  - PALPITATIONS [None]
  - VISION BLURRED [None]
  - VISUAL DISTURBANCE [None]
